FAERS Safety Report 8409418 (Version 2)
Quarter: 2012Q4

REPORT INFORMATION
  Report Type: 
  Country: US (occurrence: US)
  Receive Date: 20120216
  Receipt Date: 20120918
  Transmission Date: 20130627
  Serious: Yes (Hospitalization)
  Sender: FDA-Public Use
  Company Number: US-GLAXOSMITHKLINE-A0965774A

PATIENT
  Age: 62 Year
  Sex: Female

DRUGS (8)
  1. TYKERB [Suspect]
     Indication: BREAST CANCER
     Dosage: 1250MG Per day
     Route: 048
     Dates: end: 20120417
  2. XELODA [Suspect]
     Dosage: 2000MG Twice per day
     Dates: start: 20110812
  3. OMEPRAZOLE [Concomitant]
  4. ZOSYN [Concomitant]
     Indication: ESCHERICHIA SEPSIS
     Dates: start: 201107
  5. LEVAQUIN [Concomitant]
     Indication: ESCHERICHIA SEPSIS
     Dates: start: 201107
  6. ANCEF [Concomitant]
     Indication: ESCHERICHIA SEPSIS
     Dates: start: 201107
  7. CIPRO [Concomitant]
     Indication: ESCHERICHIA SEPSIS
     Dosage: 750MG Twice per day
     Dates: start: 201107
  8. BACTRIM DS [Concomitant]
     Indication: URINARY TRACT INFECTION

REACTIONS (33)
  - Escherichia sepsis [Recovered/Resolved]
  - Clostridium difficile colitis [Recovered/Resolved]
  - Pyelonephritis [Unknown]
  - Bacteraemia [Unknown]
  - Palmar-plantar erythrodysaesthesia syndrome [Recovering/Resolving]
  - Kidney infection [Recovered/Resolved]
  - Stomatitis [Recovered/Resolved]
  - Dry mouth [Recovered/Resolved]
  - Dysgeusia [Recovered/Resolved]
  - Fatigue [Unknown]
  - Dizziness [Unknown]
  - Tenderness [Unknown]
  - Pain [Recovering/Resolving]
  - Paraesthesia [Unknown]
  - Ataxia [Unknown]
  - Diarrhoea [Unknown]
  - Abnormal faeces [Unknown]
  - Pyrexia [Unknown]
  - Chills [Unknown]
  - Urinary tract infection bacterial [Unknown]
  - Mucosal inflammation [Recovering/Resolving]
  - Staphylococcal infection [Recovering/Resolving]
  - Cystitis [Recovering/Resolving]
  - Bone pain [Recovering/Resolving]
  - Urine output increased [Unknown]
  - Dehydration [Unknown]
  - Disorientation [Unknown]
  - Headache [Unknown]
  - Flushing [Unknown]
  - Sinusitis [Unknown]
  - Epistaxis [Unknown]
  - Urinary tract infection [Unknown]
  - Drug intolerance [Unknown]
